FAERS Safety Report 8874414 (Version 2)
Quarter: 2012Q4

REPORT INFORMATION
  Report Type: 
  Country: US (occurrence: US)
  Receive Date: 20121023
  Receipt Date: 20121214
  Transmission Date: 20130627
  Serious: No
  Sender: FDA-Public Use
  Company Number: US-VERTEX PHARMACEUTICAL INC.-2012-023327

PATIENT
  Sex: Female
  Weight: 83 kg

DRUGS (11)
  1. VX-950 (TELAPREVIR) [Suspect]
     Indication: HEPATITIS C
     Dosage: 750 mg, tid
     Route: 048
     Dates: start: 2012
  2. PEGASYS [Suspect]
     Indication: HEPATITIS C
     Dosage: 183 ?g, weekly
     Route: 058
     Dates: start: 2011
  3. RIBAPAK [Suspect]
     Indication: HEPATITIS C
     Dosage: 1000 mg, qd
     Dates: start: 2012
  4. FOLIC ACID [Concomitant]
     Dosage: UNK, qd
  5. WELLBUTRIN [Concomitant]
     Dosage: UNK, qd
  6. ATACAND [Concomitant]
     Dosage: UNK, qd
  7. PLAQUENIL                          /00072602/ [Concomitant]
     Dosage: UNK, qd
  8. FLEXERIL                           /00428402/ [Concomitant]
     Dosage: UNK, qd
  9. MOBIC [Concomitant]
     Dosage: UNK, qd
  10. CHLORTHALIDONE [Concomitant]
     Dosage: UNK, qd
  11. ACETAMINOPHEN W/CODEINE [Concomitant]

REACTIONS (1)
  - Treatment failure [Unknown]
